FAERS Safety Report 6124825-X (Version None)
Quarter: 2009Q1

REPORT INFORMATION
  Report Type: 
  Country: None (occurrence: None)
  Receive Date: 20090319
  Receipt Date: 20090312
  Transmission Date: 20090719
  Serious: Yes (Hospitalization)
  Sender: FDA-Public Use
  Company Number: US-ABBOTT-09P-163-0562022-00

PATIENT
  Sex: Male
  Weight: 73.548 kg

DRUGS (9)
  1. NIASPAN [Suspect]
     Indication: HIGH DENSITY LIPOPROTEIN DECREASED
     Route: 048
     Dates: start: 20081201, end: 20090302
  2. LOVASTATIN [Concomitant]
     Indication: BLOOD CHOLESTEROL INCREASED
     Route: 048
  3. PLAVIX [Concomitant]
     Indication: MYOCARDIAL INFARCTION
     Route: 048
  4. CARVEDILOL [Concomitant]
     Indication: HYPERTENSION
     Route: 048
  5. MULTI-VITAMIN [Concomitant]
     Indication: DRUG USE FOR UNKNOWN INDICATION
  6. CALCIUM [Concomitant]
     Indication: DRUG USE FOR UNKNOWN INDICATION
  7. VITAMIN D [Concomitant]
     Indication: DRUG USE FOR UNKNOWN INDICATION
  8. FISH OIL [Concomitant]
     Indication: DRUG USE FOR UNKNOWN INDICATION
  9. ASPIRIN [Concomitant]
     Indication: PROPHYLAXIS

REACTIONS (4)
  - ABDOMINAL DISCOMFORT [None]
  - HYPERHIDROSIS [None]
  - PARAESTHESIA [None]
  - VERTIGO [None]
